FAERS Safety Report 4673869-3 (Version None)
Quarter: 2005Q2

REPORT INFORMATION
  Report Type: 
  Country: None (occurrence: None)
  Receive Date: 20050525
  Receipt Date: 20001108
  Transmission Date: 20051028
  Serious: Yes (Death, Hospitalization)
  Sender: FDA-Public Use
  Company Number: FR-MERCK-00116059

PATIENT
  Age: 75 Year
  Sex: Female

DRUGS (6)
  1. NOROXIN [Suspect]
     Indication: URINARY TRACT INFECTION
     Route: 048
     Dates: start: 20000810, end: 20000822
  2. CEFOTAXIME SODIUM [Concomitant]
     Indication: INFECTION PROPHYLAXIS
     Route: 042
     Dates: start: 20000808, end: 20000808
  3. CELIPROLOL HYDROCHLORIDE [Concomitant]
     Indication: HYPERTENSION
     Route: 048
  4. FUROSEMIDE [Concomitant]
     Indication: HYPERTENSION
     Route: 048
  5. NICARDIPINE HYDROCHLORIDE [Concomitant]
     Indication: HYPERTENSION
     Route: 048
  6. CAPTOPRIL [Concomitant]
     Indication: HYPERTENSION
     Route: 048

REACTIONS (8)
  - CANDIDIASIS [None]
  - CANDIDURIA [None]
  - CLOSTRIDIUM COLITIS [None]
  - PERITONITIS [None]
  - PSEUDOMONAS INFECTION [None]
  - RENAL FAILURE ACUTE [None]
  - SEPTIC SHOCK [None]
  - SUPERINFECTION [None]
